FAERS Safety Report 6532063-1 (Version None)
Quarter: 2009Q4

REPORT INFORMATION
  Report Type: 
  Country: None (occurrence: None)
  Receive Date: 20091228
  Receipt Date: 20090217
  Transmission Date: 20100525
  Serious: Yes (Other)
  Sender: FDA-Public Use
  Company Number: 20090055

PATIENT
  Age: 79 Year
  Sex: Female
  Weight: 63.5036 kg

DRUGS (7)
  1. VENOFER [Suspect]
     Indication: ANAEMIA
     Dosage: INTRAVENOUS
     Route: 042
     Dates: start: 20090101, end: 20090101
  2. COREG [Concomitant]
  3. PREVACID [Concomitant]
  4. CYMBALTA [Concomitant]
  5. LOTIMAX [Concomitant]
  6. METOPROLOL TARTRATE [Concomitant]
  7. TIMOLOL MALEATE [Concomitant]

REACTIONS (3)
  - DYSPNOEA [None]
  - HYPOTENSION [None]
  - RASH [None]
